FAERS Safety Report 9233936 (Version 3)
Quarter: 2013Q2

REPORT INFORMATION
  Report Type: Spontaneous
  Country: US (occurrence: US)
  Receive Date: 20130416
  Receipt Date: 20130610
  Transmission Date: 20140414
  Serious: Yes (Other)
  Sender: FDA-Public Use
  Company Number: US-TEVA-398049USA

PATIENT
  Age: 63 Year
  Sex: Female
  Weight: 48.58 kg

DRUGS (3)
  1. QVAR [Suspect]
     Indication: ASTHMA
  2. CHOLESTEROL MEDICATION [Concomitant]
     Indication: BLOOD CHOLESTEROL INCREASED
     Dosage: 5 MILLIGRAM DAILY;
  3. THYROID MEDICATION [Concomitant]
     Indication: HYPOTHYROIDISM

REACTIONS (3)
  - Lymphoma [Unknown]
  - Nasal cavity mass [Recovered/Resolved]
  - Sinusitis [Recovered/Resolved]
